FAERS Safety Report 17216700 (Version 1)
Quarter: 2019Q4

REPORT INFORMATION
  Report Type: Report from Study
  Country: US (occurrence: US)
  Receive Date: 20191230
  Receipt Date: 20191230
  Transmission Date: 20200122
  Serious: Yes (Hospitalization)
  Sender: FDA-Public Use
  Company Number: US-ROCHE-2360373

PATIENT
  Age: 69 Year
  Sex: Male
  Weight: 110 kg

DRUGS (10)
  1. ATEZOLIZUMAB. [Suspect]
     Active Substance: ATEZOLIZUMAB
     Route: 042
     Dates: start: 20190910, end: 20190910
  2. ROGARATINIB [Suspect]
     Active Substance: ROGARATINIB
     Indication: TRANSITIONAL CELL CARCINOMA
     Route: 048
     Dates: start: 20190709, end: 20190712
  3. ATEZOLIZUMAB. [Suspect]
     Active Substance: ATEZOLIZUMAB
     Route: 042
     Dates: start: 20191001, end: 20191001
  4. ROGARATINIB [Suspect]
     Active Substance: ROGARATINIB
     Route: 048
     Dates: start: 20190820, end: 20190820
  5. ROGARATINIB [Suspect]
     Active Substance: ROGARATINIB
     Route: 048
     Dates: start: 20190910, end: 20190930
  6. ATEZOLIZUMAB. [Suspect]
     Active Substance: ATEZOLIZUMAB
     Indication: TRANSITIONAL CELL CARCINOMA
     Route: 042
     Dates: start: 20190709, end: 20190709
  7. ATEZOLIZUMAB. [Suspect]
     Active Substance: ATEZOLIZUMAB
     Route: 042
     Dates: start: 20190730, end: 20190730
  8. ATEZOLIZUMAB. [Suspect]
     Active Substance: ATEZOLIZUMAB
     Route: 042
     Dates: start: 20190820, end: 20190820
  9. ROGARATINIB [Suspect]
     Active Substance: ROGARATINIB
     Route: 048
     Dates: start: 20190723, end: 20190729
  10. ROGARATINIB [Suspect]
     Active Substance: ROGARATINIB
     Route: 048
     Dates: start: 20190730, end: 20190819

REACTIONS (2)
  - Dehydration [Not Recovered/Not Resolved]
  - Diarrhoea haemorrhagic [Recovered/Resolved]

NARRATIVE: CASE EVENT DATE: 20190713
